FAERS Safety Report 6196918-2 (Version None)
Quarter: 2009Q2

REPORT INFORMATION
  Report Type: 
  Country: None (occurrence: None)
  Receive Date: 20090518
  Receipt Date: 20090518
  Transmission Date: 20091009
  Serious: No
  Sender: FDA-Public Use
  Company Number: None

PATIENT
  Sex: Female

DRUGS (1)
  1. CALCITONIN SALMON [Suspect]
     Indication: OSTEOPOROSIS
     Dosage: 200 IU QD INTRANASAL
     Dates: start: 20090325, end: 20090515

REACTIONS (2)
  - EPISTAXIS [None]
  - PRODUCT SUBSTITUTION ISSUE [None]
